FAERS Safety Report 12693194 (Version 1)
Quarter: 2016Q3

REPORT INFORMATION
  Report Type: Spontaneous
  Country: US (occurrence: None)
  Receive Date: 20160826
  Receipt Date: 20160826
  Transmission Date: 20161109
  Serious: No
  Sender: FDA-Public Use
  Company Number: None

PATIENT
  Age: 77 Year
  Sex: Female
  Weight: 53.52 kg

DRUGS (10)
  1. CENTRUM SILVER [Concomitant]
     Active Substance: MINERALS\VITAMINS
  2. SUCRAL FATE DSM [Concomitant]
  3. VITAMIN D3 [Concomitant]
     Active Substance: CHOLECALCIFEROL
  4. MELATONIN [Concomitant]
     Active Substance: MELATONIN
  5. AMILOR/HCTZ [Concomitant]
  6. CQ10 [Concomitant]
     Active Substance: UBIDECARENONE
  7. OMEGA 3 WILD ALASKAN SALMON [Concomitant]
  8. PROLIA [Suspect]
     Active Substance: DENOSUMAB
     Indication: OSTEOPOROSIS
     Dosage: 1 INJECTION 9 6 MO. INJECTION
     Dates: start: 201406
  9. CAL CITRATE WITH MAG ZINC [Concomitant]
  10. FISH OIL [Concomitant]
     Active Substance: FISH OIL

REACTIONS (3)
  - Cough [None]
  - Throat irritation [None]
  - Oesophagitis [None]

NARRATIVE: CASE EVENT DATE: 201406
